FAERS Safety Report 5696109-5 (Version None)
Quarter: 2008Q2

REPORT INFORMATION
  Report Type: 
  Country: None (occurrence: None)
  Receive Date: 20080407
  Receipt Date: 20080327
  Transmission Date: 20081010
  Serious: Yes (Life-Threatening, Other)
  Sender: FDA-Public Use
  Company Number: US-ROCHE-553999

PATIENT
  Sex: Female

DRUGS (8)
  1. TAMIFLU [Suspect]
     Indication: DRUG USE FOR UNKNOWN INDICATION
     Route: 065
     Dates: start: 20080307, end: 20080316
  2. WARFARIN SODIUM [Concomitant]
     Dosage: DOSE REPORTED AS 3 MG QOD ALTERNATE WITH 4 MG QOD
  3. AGGRENOX [Concomitant]
     Dosage: STRENGTH: 25/ 200
     Route: 048
     Dates: start: 20070216
  4. AGGRENOX [Concomitant]
     Dosage: STRENGTH: 25/ 200
     Route: 048
     Dates: start: 20070216
  5. RAZADYNE [Concomitant]
     Route: 048
     Dates: start: 20070418
  6. LIPITOR [Concomitant]
     Dosage: FREQUENCY: Q DAY
     Route: 048
     Dates: start: 20061221
  7. REQUIP [Concomitant]
     Dosage: FREQUENCY: HS (AT NIGHT)
     Route: 048
     Dates: start: 20060426
  8. OMEPRAZOLE [Concomitant]
     Dosage: FREQUENCY: Q DAY
     Route: 048
     Dates: start: 20080115

REACTIONS (2)
  - INTERNATIONAL NORMALISED RATIO INCREASED [None]
  - PROTHROMBIN TIME PROLONGED [None]
